FAERS Safety Report 9361566 (Version 1)
Quarter: 2013Q2

REPORT INFORMATION
  Report Type: Spontaneous
  Country: GB (occurrence: GB)
  Receive Date: 20130621
  Receipt Date: 20130621
  Transmission Date: 20140414
  Serious: Yes (Hospitalization)
  Sender: FDA-Public Use
  Company Number: GB-GLAXOSMITHKLINE-B0898637A

PATIENT
  Age: 64 Year
  Sex: 0

DRUGS (1)
  1. ORLISTAT [Suspect]
     Dosage: 360MG PER DAY
     Route: 048

REACTIONS (1)
  - Pancreatitis acute [Recovered/Resolved]
